FAERS Safety Report 26058139 (Version 2)
Quarter: 2025Q4

REPORT INFORMATION
  Report Type: Report from Study
  Country: US (occurrence: US)
  Receive Date: 20251118
  Receipt Date: 20251121
  Transmission Date: 20260117
  Serious: No
  Sender: SANDOZ
  Company Number: US-SANDOZ-SDZ2025US085215

PATIENT
  Sex: Male

DRUGS (1)
  1. GLATOPA [Suspect]
     Active Substance: GLATIRAMER ACETATE
     Indication: Multiple sclerosis
     Dosage: 40 MG, BID
     Route: 058

REACTIONS (5)
  - Injection site urticaria [Unknown]
  - Adverse event [Unknown]
  - Injection site mass [Unknown]
  - Incorrect drug administration rate [Unknown]
  - Device issue [Unknown]
